FAERS Safety Report 11603877 (Version 1)
Quarter: 2015Q4

REPORT INFORMATION
  Report Type: Spontaneous
  Country: US (occurrence: None)
  Receive Date: 20151006
  Receipt Date: 20151006
  Transmission Date: 20160304
  Serious: Yes (Hospitalization)
  Sender: FDA-Public Use
  Company Number: None

PATIENT
  Age: 65 Year
  Sex: Male

DRUGS (16)
  1. KCL [Concomitant]
     Active Substance: POTASSIUM CHLORIDE
  2. SIMVASTATIN. [Concomitant]
     Active Substance: SIMVASTATIN
  3. VITAMIN B12 [Concomitant]
     Active Substance: CYANOCOBALAMIN
  4. ATENOLOL. [Concomitant]
     Active Substance: ATENOLOL
  5. AMPYRA [Suspect]
     Active Substance: DALFAMPRIDINE
     Indication: MULTIPLE SCLEROSIS
     Route: 048
     Dates: start: 201009
  6. GLUCOSAMINE/CHONDROITIN [Concomitant]
  7. ALENDRONATE [Concomitant]
     Active Substance: ALENDRONATE SODIUM
  8. TIZANIDINE. [Concomitant]
     Active Substance: TIZANIDINE
  9. FUROSEMIDE. [Concomitant]
     Active Substance: FUROSEMIDE
  10. FISH OIL [Concomitant]
     Active Substance: FISH OIL
  11. CALCIUM [Concomitant]
     Active Substance: CALCIUM
  12. METHOCARBAMOL. [Concomitant]
     Active Substance: METHOCARBAMOL
  13. TRAZODONE [Concomitant]
     Active Substance: TRAZODONE HYDROCHLORIDE
  14. DRONABINOL. [Concomitant]
     Active Substance: DRONABINOL
  15. VITAMIN E [Concomitant]
     Active Substance: .ALPHA.-TOCOPHEROL
  16. MVI [Concomitant]
     Active Substance: VITAMINS

REACTIONS (4)
  - Cough [None]
  - Pneumonia [None]
  - Asthenia [None]
  - Pyrexia [None]

NARRATIVE: CASE EVENT DATE: 20150926
